FAERS Safety Report 9203570 (Version 2)
Quarter: 2013Q2

REPORT INFORMATION
  Report Type: Spontaneous
  Country: FR (occurrence: FR)
  Receive Date: 20130402
  Receipt Date: 20130606
  Transmission Date: 20140414
  Serious: Yes (Disabling, Other)
  Sender: FDA-Public Use
  Company Number: PHHY2013FR031079

PATIENT
  Sex: Female

DRUGS (3)
  1. ACLASTA [Suspect]
     Indication: OSTEITIS DEFORMANS
     Dosage: 5 MG, UNK
     Route: 042
     Dates: start: 20121130
  2. HOMEOPATICS NOS [Concomitant]
     Indication: MIGRAINE
     Dosage: UNK UKN, UNK
     Route: 048
  3. CALTRATE//CALCIUM CARBONATE [Concomitant]
     Dosage: UNK UKN, BID
     Route: 048

REACTIONS (8)
  - Back pain [Unknown]
  - Pain in extremity [Unknown]
  - Musculoskeletal pain [Unknown]
  - Drug-induced liver injury [Recovered/Resolved]
  - Bone disorder [Recovered/Resolved]
  - Migraine [Recovered/Resolved]
  - Tetany [Recovered/Resolved]
  - Fatigue [Unknown]
